FAERS Safety Report 4428382-5 (Version None)
Quarter: 2004Q3

REPORT INFORMATION
  Report Type: 
  Country: None (occurrence: None)
  Receive Date: 20040813
  Receipt Date: 20040803
  Transmission Date: 20050211
  Serious: Yes (Other)
  Sender: FDA-Public Use
  Company Number: 2004227000GB

PATIENT
  Age: 18 Year
  Sex: Female

DRUGS (1)
  1. DEPO-PROVERA [Suspect]
     Indication: CONTRACEPTION
     Dosage: 150 MG/1ST INJECT., INTRAMUSCULAR
     Route: 030
     Dates: start: 20040205, end: 20040205

REACTIONS (1)
  - THROMBOCYTOPENIA [None]
